FAERS Safety Report 25861692 (Version 2)
Quarter: 2025Q4

REPORT INFORMATION
  Report Type: Report from Study
  Country: US (occurrence: US)
  Receive Date: 20250930
  Receipt Date: 20251008
  Transmission Date: 20260117
  Serious: Yes (Hospitalization, Other)
  Sender: Pyros Pharmaceuticals
  Company Number: US-PYROS PHARMACEUTICALS, INC-20250901217

PATIENT
  Sex: Female

DRUGS (2)
  1. VIGAFYDE [Suspect]
     Active Substance: VIGABATRIN
     Indication: Product used for unknown indication
     Dosage: 500 MG (5 ML), BID
     Route: 048
     Dates: start: 20250830
  2. VIGAFYDE [Suspect]
     Active Substance: VIGABATRIN
     Dosage: 500 MG (5 ML), BID
     Route: 048
     Dates: start: 20250830

REACTIONS (10)
  - Hypophagia [Not Recovered/Not Resolved]
  - Pneumonia aspiration [Not Recovered/Not Resolved]
  - Sedation [Recovered/Resolved]
  - Respiratory distress [Not Recovered/Not Resolved]
  - Infantile spitting up [Not Recovered/Not Resolved]
  - Poor feeding infant [Not Recovered/Not Resolved]
  - Dysphagia [Not Recovered/Not Resolved]
  - Swelling [Not Recovered/Not Resolved]
  - Gastrointestinal disorder [Not Recovered/Not Resolved]
  - Somnolence [Not Recovered/Not Resolved]

NARRATIVE: CASE EVENT DATE: 20250101
